FAERS Safety Report 15359298 (Version 4)
Quarter: 2019Q3

REPORT INFORMATION
  Report Type: Spontaneous
  Country: US (occurrence: US)
  Receive Date: 20180907
  Receipt Date: 20190801
  Transmission Date: 20191004
  Serious: Yes (Other)
  Sender: FDA-Public Use
  Company Number: US-ASTRAZENECA-2018SF11606

PATIENT
  Age: 541 Month
  Sex: Female
  Weight: 72.6 kg

DRUGS (7)
  1. COLACE [Concomitant]
     Active Substance: DOCUSATE SODIUM
     Indication: FAECES SOFT
     Route: 048
     Dates: start: 201702
  2. MOVANTIK [Suspect]
     Active Substance: NALOXEGOL OXALATE
     Indication: CONSTIPATION
     Route: 048
     Dates: start: 201608, end: 201611
  3. MOVANTIK [Suspect]
     Active Substance: NALOXEGOL OXALATE
     Indication: CEREBRAL PALSY
     Route: 048
     Dates: start: 201608, end: 201611
  4. MOVANTIK [Suspect]
     Active Substance: NALOXEGOL OXALATE
     Indication: CONSTIPATION
     Route: 048
     Dates: start: 201611, end: 201702
  5. MOVANTIK [Suspect]
     Active Substance: NALOXEGOL OXALATE
     Indication: CONSTIPATION
     Route: 048
     Dates: start: 201702, end: 20180827
  6. MOVANTIK [Suspect]
     Active Substance: NALOXEGOL OXALATE
     Indication: CEREBRAL PALSY
     Route: 048
     Dates: start: 201702, end: 20180827
  7. MOVANTIK [Suspect]
     Active Substance: NALOXEGOL OXALATE
     Indication: CEREBRAL PALSY
     Route: 048
     Dates: start: 201611, end: 201702

REACTIONS (16)
  - Rectal haemorrhage [Unknown]
  - Hypophagia [Unknown]
  - Off label use [Unknown]
  - Therapy cessation [Unknown]
  - Diarrhoea [Recovered/Resolved]
  - Product use in unapproved indication [Unknown]
  - Presyncope [Unknown]
  - Abdominal discomfort [Unknown]
  - Flatulence [Unknown]
  - Localised infection [Unknown]
  - Skin disorder [Unknown]
  - Insomnia [Unknown]
  - Abdominal distension [Unknown]
  - Bladder disorder [Unknown]
  - Dehydration [Unknown]
  - Drug ineffective [Recovered/Resolved]

NARRATIVE: CASE EVENT DATE: 201608
